FAERS Safety Report 5387438-3 (Version None)
Quarter: 2007Q3

REPORT INFORMATION
  Report Type: 
  Country: None (occurrence: None)
  Receive Date: 20070716
  Receipt Date: 20070706
  Transmission Date: 20080115
  Serious: Yes (Other)
  Sender: FDA-Public Use
  Company Number: JP-AVENTIS-200711816JP

PATIENT
  Age: 17 Year
  Sex: Female

DRUGS (1)
  1. ALLEGRA [Suspect]
     Dosage: DOSE: 3 TABLETS
     Route: 048

REACTIONS (2)
  - HYPOTENSION [None]
  - SHOCK [None]
